FAERS Safety Report 9913827 (Version 2)
Quarter: 2014Q1

REPORT INFORMATION
  Report Type: Spontaneous
  Country: US (occurrence: US)
  Receive Date: 20140220
  Receipt Date: 20140226
  Transmission Date: 20141002
  Serious: Yes (Hospitalization)
  Sender: FDA-Public Use
  Company Number: US-BAXTER-2014BAX008498

PATIENT
  Age: 43 Year
  Sex: Female

DRUGS (2)
  1. DIANEAL PD2 [Suspect]
     Indication: PERITONEAL DIALYSIS
     Dosage: 2.5 LITERS BAG
     Route: 033
  2. DIANEAL PD2 (ULTRABAG) [Suspect]
     Indication: PERITONEAL DIALYSIS
     Dosage: 3 LITERS BAG
     Route: 033

REACTIONS (3)
  - Pyrexia [Not Recovered/Not Resolved]
  - Poor quality drug administered [Unknown]
  - Product contamination physical [Unknown]
